FAERS Safety Report 7206358-2 (Version None)
Quarter: 2011Q1

REPORT INFORMATION
  Report Type: 
  Country: None (occurrence: None)
  Receive Date: 20110103
  Receipt Date: 20110103
  Transmission Date: 20110831
  Serious: Yes (Hospitalization)
  Sender: FDA-Public Use
  Company Number: PHHO2007DE16274

PATIENT
  Sex: Male
  Weight: 89.7 kg

DRUGS (2)
  1. CERTICAN [Suspect]
     Dosage: CODE NOT BROKEN
     Route: 048
     Dates: start: 20071015
  2. CERTICAN [Suspect]
     Indication: CONGENITAL CYSTIC KIDNEY DISEASE
     Dosage: UNK
     Route: 048
     Dates: start: 20070614, end: 20070912

REACTIONS (5)
  - COUGH [None]
  - DRUG INEFFECTIVE [None]
  - PNEUMONIA [None]
  - PYREXIA [None]
  - RHINORRHOEA [None]
